FAERS Safety Report 20369439 (Version 3)
Quarter: 2022Q1

REPORT INFORMATION
  Report Type: Spontaneous
  Country: LT (occurrence: LT)
  Receive Date: 20220124
  Receipt Date: 20220208
  Transmission Date: 20220423
  Serious: Yes (Life-Threatening, Hospitalization, Other)
  Sender: FDA-Public Use
  Company Number: LT-002147023-NVSC2021LT163931

PATIENT
  Age: 71 Year
  Sex: Male

DRUGS (7)
  1. OMEPRAZOLE [Suspect]
     Active Substance: OMEPRAZOLE
     Indication: Gastrointestinal disorder prophylaxis
     Dosage: 20 MILLIGRAM DAILY; 20 MG, QD (23 JUL 2020) THERAPY START DATE ASKU
     Route: 048
  2. VALACYCLOVIR HYDROCHLORIDE [Suspect]
     Active Substance: VALACYCLOVIR HYDROCHLORIDE
     Indication: Prophylaxis
     Dosage: 1000 MILLIGRAM DAILY; 500 MG, BID (23 JUL 2020) THERAPY START DATE AND END DATE: ASKU
     Route: 048
  3. LIPASE [Suspect]
     Active Substance: LIPASE
     Indication: Dyspepsia
     Dosage: 75000 IU (INTERNATIONAL UNIT) DAILY; 25000 IU, TID THERAPY END DATE ASKU
     Route: 048
     Dates: start: 20210212
  4. LIPASE [Suspect]
     Active Substance: LIPASE
     Indication: Abdominal distension
  5. MIDOSTAURIN [Suspect]
     Active Substance: MIDOSTAURIN
     Indication: Product used for unknown indication
     Dosage: 100 MILLIGRAM DAILY; 100 MG, QD
     Route: 065
     Dates: start: 20201002, end: 20201202
  6. DAPSONE [Suspect]
     Active Substance: DAPSONE
     Indication: Antifungal prophylaxis
     Dosage: 100 MG, Q3W THERAPY END DATE ASKU
     Route: 048
     Dates: start: 20211202
  7. METOPROLOL [Suspect]
     Active Substance: METOPROLOL
     Indication: Tachycardia
     Dosage: 47.5 MILLIGRAM DAILY; 47.5 MG, QD (23 JUL 2020) , THERAPY START DATE AND END DATE : ASKU
     Route: 065

REACTIONS (9)
  - Pyrexia [Not Recovered/Not Resolved]
  - Malaise [Unknown]
  - C-reactive protein increased [Unknown]
  - Sepsis [Not Recovered/Not Resolved]
  - Sepsis [Not Recovered/Not Resolved]
  - Fatigue [Unknown]
  - Condition aggravated [Unknown]
  - Salmonellosis [Unknown]
  - Diarrhoea [Unknown]

NARRATIVE: CASE EVENT DATE: 20210711
